FAERS Safety Report 10559166 (Version 2)
Quarter: 2014Q4

REPORT INFORMATION
  Report Type: Report from Study
  Country: AT (occurrence: AT)
  Receive Date: 20141103
  Receipt Date: 20141112
  Transmission Date: 20150529
  Serious: Yes (Hospitalization)
  Sender: FDA-Public Use
  Company Number: AT-ROCHE-1482883

PATIENT
  Age: 15 Year
  Sex: Male
  Weight: 47.4 kg

DRUGS (13)
  1. CELECOXIB. [Suspect]
     Active Substance: CELECOXIB
     Indication: MEDULLOBLASTOMA
     Route: 048
     Dates: start: 20140409
  2. ETOPOSIDE. [Suspect]
     Active Substance: ETOPOSIDE
     Route: 037
  3. LIPOSOMAL CYTARABINE [Suspect]
     Active Substance: CYTARABINE
     Indication: MEDULLOBLASTOMA
     Route: 037
     Dates: start: 20140409
  4. LEVETIRACETAM. [Concomitant]
     Active Substance: LEVETIRACETAM
     Indication: EPILEPSY
     Route: 048
     Dates: start: 20140911
  5. THYREX [Concomitant]
     Active Substance: LEVOTHYROXINE SODIUM
     Indication: HYPOTHYROIDISM
     Route: 048
     Dates: start: 20120315
  6. FOLSAN [Concomitant]
     Active Substance: FOLIC ACID
     Indication: FOLATE DEFICIENCY
     Route: 048
     Dates: start: 20140906
  7. THALIDOMIDE [Suspect]
     Active Substance: THALIDOMIDE
     Indication: MEDULLOBLASTOMA
     Route: 048
     Dates: start: 20140409
  8. NEXIUM [Concomitant]
     Active Substance: ESOMEPRAZOLE MAGNESIUM
     Indication: PROPHYLAXIS
     Route: 048
     Dates: start: 20140425
  9. BEVACIZUMAB [Suspect]
     Active Substance: BEVACIZUMAB
     Indication: MEDULLOBLASTOMA
     Dosage: LAST DOSE PRIOR TO SAE: 28/OCT/2014
     Route: 042
     Dates: start: 20140409
  10. EUSAPRIM [Concomitant]
     Indication: PROPHYLAXIS
     Route: 048
     Dates: start: 20140409
  11. FENOFIBRATE. [Suspect]
     Active Substance: FENOFIBRATE
     Indication: MEDULLOBLASTOMA
     Dosage: LAST DOSE PRIOR TO SAE: 28/OCT/2014
     Route: 048
     Dates: start: 20140409
  12. ETOPOSIDE. [Suspect]
     Active Substance: ETOPOSIDE
     Indication: MEDULLOBLASTOMA
     Dosage: LAST DOSE PRIOR TO SAE: 28/OCT/2014
     Route: 048
     Dates: start: 20140409, end: 20141012
  13. CYCLOPHOSPHAMIDE. [Suspect]
     Active Substance: CYCLOPHOSPHAMIDE
     Indication: MEDULLOBLASTOMA
     Dosage: LAST DOSE PRIOR TO SAE: 28/OCT/2014
     Route: 048
     Dates: start: 20141013

REACTIONS (1)
  - Diplopia [Recovering/Resolving]

NARRATIVE: CASE EVENT DATE: 20141028
